FAERS Safety Report 25373509 (Version 1)
Quarter: 2025Q2

REPORT INFORMATION
  Report Type: Spontaneous
  Country: US (occurrence: None)
  Receive Date: 20250528
  Receipt Date: 20250528
  Transmission Date: 20250717
  Serious: Yes (Death)
  Sender: FDA-CTU
  Company Number: None

PATIENT
  Age: 66 Year
  Sex: Female

DRUGS (25)
  1. TADALAFIL [Suspect]
     Active Substance: TADALAFIL
     Indication: Pulmonary arterial hypertension
     Dosage: FREQUENCY : DAILY;?
     Route: 048
     Dates: start: 20230928, end: 20250507
  2. SELEXIPAG [Suspect]
     Active Substance: SELEXIPAG
  3. SELEXIPAG [Concomitant]
     Active Substance: SELEXIPAG
  4. DIGOXIN [Concomitant]
     Active Substance: DIGOXIN
  5. ATORVASTATIN [Concomitant]
     Active Substance: ATORVASTATIN
  6. FOLIC ACID [Concomitant]
     Active Substance: FOLIC ACID
  7. PANTOPRAZOLE [Concomitant]
     Active Substance: PANTOPRAZOLE
  8. NORCO [Concomitant]
     Active Substance: ACETAMINOPHEN\HYDROCODONE BITARTRATE
  9. SPIRONOLACTONE [Concomitant]
     Active Substance: SPIRONOLACTONE
  10. TORSEMIDE [Concomitant]
     Active Substance: TORSEMIDE
  11. FERROUS SULFATE [Concomitant]
     Active Substance: FERROUS SULFATE
  12. JARDIANCE [Concomitant]
     Active Substance: EMPAGLIFLOZIN
  13. HUMULIN R [Concomitant]
     Active Substance: INSULIN HUMAN
  14. HUMULIN N [Concomitant]
     Active Substance: INSULIN HUMAN
  15. ASPIRIN [Concomitant]
     Active Substance: ASPIRIN
  16. POTASSIUM CHLORIDE [Concomitant]
     Active Substance: POTASSIUM CHLORIDE
  17. GABAPENTIN [Concomitant]
     Active Substance: GABAPENTIN
  18. VICTOZA [Concomitant]
     Active Substance: LIRAGLUTIDE
  19. DICLOFENAC TOP GEL [Concomitant]
  20. MUPIROCIN TOP OINT [Concomitant]
  21. VITAMIN C [Concomitant]
     Active Substance: ASCORBIC ACID
  22. ZINC LOZENGES [Concomitant]
  23. VITAMIN D2 [Concomitant]
     Active Substance: ERGOCALCIFEROL
  24. LOPERAMIDE [Concomitant]
     Active Substance: LOPERAMIDE
  25. LACTOBACILLUS ACIDOOPHILUS [Concomitant]

REACTIONS (1)
  - Unresponsive to stimuli [None]

NARRATIVE: CASE EVENT DATE: 20250507
